FAERS Safety Report 4506174-6 (Version None)
Quarter: 2004Q4

REPORT INFORMATION
  Report Type: 
  Country: None (occurrence: None)
  Receive Date: 20041025
  Receipt Date: 20040519
  Transmission Date: 20050328
  Serious: Yes (Hospitalization)
  Sender: FDA-Public Use
  Company Number: US-JNJFOC-20040401833

PATIENT
  Age: 42 Year
  Sex: Female
  Weight: 92.0802 kg

DRUGS (24)
  1. REMICADE [Suspect]
     Indication: SARCOIDOSIS
     Dosage: SEE IMAGE
     Route: 042
     Dates: start: 20031230
  2. REMICADE [Suspect]
     Indication: SARCOIDOSIS
     Dosage: SEE IMAGE
     Route: 042
     Dates: start: 20040112
  3. REMICADE [Suspect]
     Indication: SARCOIDOSIS
     Dosage: SEE IMAGE
     Route: 042
     Dates: start: 20040209
  4. REMICADE [Suspect]
     Indication: SARCOIDOSIS
     Dosage: SEE IMAGE
     Route: 042
     Dates: start: 20040311
  5. REMICADE [Suspect]
     Indication: SARCOIDOSIS
     Dosage: SEE IMAGE
     Route: 042
     Dates: start: 20040408
  6. REMICADE [Suspect]
  7. REMICADE [Suspect]
  8. REMICADE [Suspect]
  9. REMICADE [Suspect]
  10. DYAZIDE [Concomitant]
  11. PRILOSEC [Concomitant]
  12. FOLIC ACID [Concomitant]
  13. BACTRIM [Concomitant]
  14. METHOTREXATE [Concomitant]
  15. AVANDIA [Concomitant]
  16. ALESSE (EUGYNON) [Concomitant]
  17. TOPROL-XL [Concomitant]
  18. PREDNISONE [Concomitant]
  19. DESMOPRESSIN (DESMOPRESSIN) [Concomitant]
  20. LEVOXYL [Concomitant]
  21. PLAQUENIL [Concomitant]
  22. LOTENSIN [Concomitant]
  23. LIPITOR [Concomitant]
  24. FOSAMAX [Concomitant]

REACTIONS (1)
  - PANCREATITIS ACUTE [None]
